FAERS Safety Report 23142866 (Version 1)
Quarter: 2023Q4

REPORT INFORMATION
  Report Type: Spontaneous
  Country: BR (occurrence: BR)
  Receive Date: 20231103
  Receipt Date: 20231103
  Transmission Date: 20240109
  Serious: Yes (Death, Hospitalization)
  Sender: FDA-Public Use
  Company Number: BR-STRIDES ARCOLAB LIMITED-2023SP016404

PATIENT
  Age: 31 Year
  Sex: Male

DRUGS (1)
  1. PREDNISOLONE [Suspect]
     Active Substance: PREDNISOLONE
     Indication: Kaposi^s sarcoma
     Dosage: 1 MILLIGRAM/KILOGRAM, PER DAY
     Route: 065

REACTIONS (2)
  - Tumour lysis syndrome [Fatal]
  - Haemophagocytic lymphohistiocytosis [Fatal]
